FAERS Safety Report 12235098 (Version 1)
Quarter: 2016Q2

REPORT INFORMATION
  Report Type: Spontaneous
  Country: BE (occurrence: BE)
  Receive Date: 20160404
  Receipt Date: 20160404
  Transmission Date: 20160815
  Serious: Yes (Life-Threatening, Hospitalization)
  Sender: FDA-Public Use
  Company Number: BE-BAYER-2016-061958

PATIENT
  Age: 65 Year
  Sex: Male
  Weight: 73 kg

DRUGS (1)
  1. CLARINASE ONCE DAILY [Suspect]
     Active Substance: LORATADINE\PSEUDOEPHEDRINE SULFATE
     Indication: SINUSITIS
     Dosage: UNK
     Route: 048
     Dates: start: 20160218, end: 20160219

REACTIONS (4)
  - Ischaemic stroke [Recovering/Resolving]
  - Dysarthria [Recovering/Resolving]
  - Gait disturbance [Recovering/Resolving]
  - Insomnia [None]

NARRATIVE: CASE EVENT DATE: 20160218
